FAERS Safety Report 10511985 (Version 3)
Quarter: 2017Q4

REPORT INFORMATION
  Report Type: Spontaneous
  Country: CA (occurrence: CA)
  Receive Date: 20141010
  Receipt Date: 20171101
  Transmission Date: 20180320
  Serious: No
  Sender: FDA-Public Use
  Company Number: CA-FRI-1000071311

PATIENT
  Sex: Female

DRUGS (2)
  1. ASENAPINE MALEATE - BP [Suspect]
     Active Substance: ASENAPINE MALEATE
     Indication: PRODUCT USED FOR UNKNOWN INDICATION
     Dosage: 1 DF, QHS
     Route: 065
     Dates: start: 20131101, end: 20131114
  2. VALIUM [Concomitant]
     Active Substance: DIAZEPAM
     Indication: PRODUCT USED FOR UNKNOWN INDICATION
     Dosage: UNK

REACTIONS (8)
  - Mobility decreased [Unknown]
  - Pruritus [Unknown]
  - Dyspnoea [Unknown]
  - Hypotension [Unknown]
  - Agitation [Unknown]
  - Body temperature increased [Unknown]
  - Hyperthermia [Unknown]
  - Respiratory rate increased [Unknown]
